FAERS Safety Report 12916747 (Version 1)
Quarter: 2016Q4

REPORT INFORMATION
  Report Type: Spontaneous
  Country: US (occurrence: US)
  Receive Date: 20161107
  Receipt Date: 20161107
  Transmission Date: 20170207
  Serious: No
  Sender: FDA-Public Use
  Company Number: US-JAZZ-2016-US-017257

PATIENT
  Sex: Female

DRUGS (45)
  1. XYREM [Suspect]
     Active Substance: SODIUM OXYBATE
     Indication: CATAPLEXY
     Dosage: DOSE ADJUSTMENTS
     Route: 048
     Dates: start: 200905, end: 201607
  2. INVOKANA [Concomitant]
     Active Substance: CANAGLIFLOZIN
  3. AMITRIPTYLINE HCL [Concomitant]
     Active Substance: AMITRIPTYLINE
  4. AMBIEN CR [Concomitant]
     Active Substance: ZOLPIDEM TARTRATE
  5. XYREM [Suspect]
     Active Substance: SODIUM OXYBATE
     Indication: NARCOLEPSY
     Dosage: 2.25 G, BID
     Route: 048
     Dates: start: 200901, end: 200905
  6. TOFRANIL [Concomitant]
     Active Substance: IMIPRAMINE HYDROCHLORIDE
  7. HYDROXYZINE [Concomitant]
     Active Substance: HYDROXYZINE\HYDROXYZINE HYDROCHLORIDE
  8. LANTUS [Concomitant]
     Active Substance: INSULIN GLARGINE
  9. PAXIL [Concomitant]
     Active Substance: PAROXETINE HYDROCHLORIDE
  10. NORCO [Concomitant]
     Active Substance: ACETAMINOPHEN\HYDROCODONE BITARTRATE
  11. DRAMAMINE [Concomitant]
     Active Substance: DIMENHYDRINATE
  12. TYLENOL EXTRA STRENGTH [Concomitant]
     Active Substance: ACETAMINOPHEN
  13. CHLORPHENIRAMINE. [Concomitant]
     Active Substance: CHLORPHENIRAMINE
  14. LASIX [Concomitant]
     Active Substance: FUROSEMIDE
  15. NYSTATIN. [Concomitant]
     Active Substance: NYSTATIN
  16. BUSPIRONE HCL [Concomitant]
     Active Substance: BUSPIRONE HYDROCHLORIDE
  17. CELEXA [Concomitant]
     Active Substance: CITALOPRAM HYDROBROMIDE
  18. VISTARIL [Concomitant]
     Active Substance: HYDROXYZINE PAMOATE
  19. FLEXERIL [Concomitant]
     Active Substance: CYCLOBENZAPRINE HYDROCHLORIDE
  20. HUMALOG [Concomitant]
     Active Substance: INSULIN LISPRO
  21. ACETAMINOPHEN. [Concomitant]
     Active Substance: ACETAMINOPHEN
  22. XANAX [Concomitant]
     Active Substance: ALPRAZOLAM
  23. GLIMEPIRIDE. [Concomitant]
     Active Substance: GLIMEPIRIDE
  24. BENADRYL [Concomitant]
     Active Substance: DIPHENHYDRAMINE HYDROCHLORIDE
  25. IMIPRAMINE [Concomitant]
     Active Substance: IMIPRAMINE
  26. CLOTRIMAZOLE. [Concomitant]
     Active Substance: CLOTRIMAZOLE
  27. DEXTROAMPHETAMINE. [Concomitant]
     Active Substance: DEXTROAMPHETAMINE
  28. IBUPROFEN. [Concomitant]
     Active Substance: IBUPROFEN
  29. GABAPENTIN. [Concomitant]
     Active Substance: GABAPENTIN
  30. METFORMIN [Concomitant]
     Active Substance: METFORMIN HYDROCHLORIDE
  31. MELATONIN [Concomitant]
     Active Substance: MELATONIN
  32. CITALOPRAM [Concomitant]
     Active Substance: CITALOPRAM HYDROBROMIDE
  33. REMERON [Concomitant]
     Active Substance: MIRTAZAPINE
  34. NITROFURANTOIN. [Concomitant]
     Active Substance: NITROFURANTOIN
  35. INDOMETHACIN. [Concomitant]
     Active Substance: INDOMETHACIN
  36. COZAAR [Concomitant]
     Active Substance: LOSARTAN POTASSIUM
  37. CLONAZEPAM. [Concomitant]
     Active Substance: CLONAZEPAM
  38. CYMBALTA [Concomitant]
     Active Substance: DULOXETINE HYDROCHLORIDE
  39. GLYBURIDE. [Concomitant]
     Active Substance: GLYBURIDE
  40. LISINOPRIL. [Concomitant]
     Active Substance: LISINOPRIL
  41. JANUVIA [Concomitant]
     Active Substance: SITAGLIPTIN PHOSPHATE
  42. XYREM [Suspect]
     Active Substance: SODIUM OXYBATE
     Dosage: 4.5 G, BID
     Route: 048
     Dates: start: 201607
  43. LYRICA [Concomitant]
     Active Substance: PREGABALIN
  44. RITALIN [Concomitant]
     Active Substance: METHYLPHENIDATE HYDROCHLORIDE
  45. SIMVASTATIN. [Concomitant]
     Active Substance: SIMVASTATIN

REACTIONS (1)
  - Diarrhoea [Unknown]
